FAERS Safety Report 5565697-1 (Version None)
Quarter: 2007Q4

REPORT INFORMATION
  Report Type: 
  Country: None (occurrence: None)
  Receive Date: 20071218
  Receipt Date: 20071206
  Transmission Date: 20080405
  Serious: Yes (Hospitalization)
  Sender: FDA-Public Use
  Company Number: JP-AMGEN-US252753

PATIENT
  Sex: Female
  Weight: 60 kg

DRUGS (15)
  1. ENBREL [Suspect]
     Indication: RHEUMATOID ARTHRITIS
     Route: 058
     Dates: start: 20061228, end: 20071006
  2. ARAVA [Suspect]
     Dosage: UNSPECIFIED
     Route: 048
     Dates: start: 20030101, end: 20061201
  3. ARAVA [Suspect]
     Dosage: UNSPECIFIED
     Route: 048
     Dates: start: 20070301, end: 20070401
  4. RIMATIL [Suspect]
     Dosage: UNSPECIFIED
     Route: 048
     Dates: end: 20071006
  5. SODIUM AUROTHIOMALATE [Suspect]
  6. RHEUMATREX [Suspect]
     Indication: RHEUMATOID ARTHRITIS
     Dosage: UNSPECIFIED
     Route: 048
     Dates: start: 20010101
  7. RHEUMATREX [Suspect]
     Route: 048
     Dates: start: 20070701, end: 20071006
  8. RIDAURA [Concomitant]
     Dosage: UNSPECIFIED
     Route: 048
  9. LOXONIN [Concomitant]
     Indication: RHEUMATOID ARTHRITIS
     Dosage: UNSPECIFIED
     Route: 048
  10. MUCOSTA [Concomitant]
     Dosage: UNSPECIFIED
     Route: 048
  11. VOLTAREN [Concomitant]
     Dosage: UNSPECIFIED
     Route: 048
  12. SELTOUCH [Concomitant]
  13. AMLODIPINE BESYLATE [Concomitant]
     Indication: HYPERTENSION
  14. OLMESARTAN MEDOXOMIL [Concomitant]
     Indication: HYPERTENSION
  15. PREDNISOLONE [Concomitant]
     Indication: RHEUMATOID ARTHRITIS
     Route: 048

REACTIONS (1)
  - NEPHROTIC SYNDROME [None]
